FAERS Safety Report 6670293-9 (Version None)
Quarter: 2010Q2

REPORT INFORMATION
  Report Type: 
  Country: None (occurrence: None)
  Receive Date: 20100405
  Receipt Date: 20100318
  Transmission Date: 20101027
  Serious: Yes (Death, Other)
  Sender: FDA-Public Use
  Company Number: 2010000948

PATIENT
  Age: 82 Year
  Sex: Male

DRUGS (8)
  1. TARCEVA [Suspect]
     Indication: LUNG ADENOCARCINOMA
     Dosage: (150 MG, QD), ORAL
     Route: 048
     Dates: start: 20091203, end: 20100118
  2. FAMOTIDINE [Suspect]
     Indication: LUNG ADENOCARCINOMA
     Dosage: (1 DOSAGE FORMS, QD), ORAL
     Route: 048
     Dates: start: 20091203, end: 20100115
  3. PLETAL [Concomitant]
  4. OPALMON (LIMAPROST) [Concomitant]
  5. BIOFERMIN (BIOFERMIN) [Concomitant]
  6. EVIPROSTAT (EVIPROSTAT) [Concomitant]
  7. BETHANECHOL CHLORIDE [Concomitant]
  8. URIEF [Concomitant]

REACTIONS (8)
  - CONDITION AGGRAVATED [None]
  - DISSEMINATED INTRAVASCULAR COAGULATION [None]
  - HAEMORRHAGIC DIATHESIS [None]
  - HYPOXIA [None]
  - INTERSTITIAL LUNG DISEASE [None]
  - OEDEMA [None]
  - PURPURA [None]
  - URINE OUTPUT DECREASED [None]
